FAERS Safety Report 7356751-2 (Version None)
Quarter: 2011Q1

REPORT INFORMATION
  Report Type: 
  Country: None (occurrence: None)
  Receive Date: 20110316
  Receipt Date: 20110315
  Transmission Date: 20110831
  Serious: Yes (Hospitalization)
  Sender: FDA-Public Use
  Company Number: CH-MERCK-1103USA02073

PATIENT
  Age: 65 Year
  Sex: Female

DRUGS (7)
  1. FOSAMAX [Suspect]
     Indication: OSTEOPOROSIS
     Route: 065
     Dates: start: 19990101, end: 20050101
  2. NEXIUM [Suspect]
     Indication: HIATUS HERNIA
     Route: 065
  3. ANAFRANIL [Concomitant]
     Indication: DEPRESSION
     Route: 065
  4. CALCIMAGON D3 [Concomitant]
     Route: 065
  5. BONIVA [Suspect]
     Indication: OSTEOPOROSIS
     Route: 065
     Dates: start: 20050101, end: 20110303
  6. BETASERC [Concomitant]
     Indication: MENIERE'S DISEASE
     Route: 065
  7. NEXIUM [Suspect]
     Indication: GASTRITIS
     Route: 065

REACTIONS (3)
  - FEMUR FRACTURE [None]
  - GAIT DISTURBANCE [None]
  - LOWER LIMB FRACTURE [None]
